FAERS Safety Report 26093980 (Version 2)
Quarter: 2025Q4

REPORT INFORMATION
  Report Type: Report from Study
  Country: JP (occurrence: JP)
  Receive Date: 20251126
  Receipt Date: 20251221
  Transmission Date: 20260118
  Serious: Yes (Hospitalization)
  Sender: EISAI
  Company Number: JP-Eisai-202413669_LEQ_P_1

PATIENT
  Age: 70 Year
  Sex: Female
  Weight: 47 kg

DRUGS (4)
  1. LEQEMBI [Suspect]
     Active Substance: LECANEMAB-IRMB
     Indication: Dementia Alzheimer^s type
     Route: 042
     Dates: start: 20241022, end: 20250107
  2. LEQEMBI [Suspect]
     Active Substance: LECANEMAB-IRMB
     Route: 042
     Dates: start: 20250617
  3. LEQEMBI [Suspect]
     Active Substance: LECANEMAB-IRMB
     Route: 042
     Dates: start: 20251104, end: 20251104
  4. METHYLCOBALAMIN [Concomitant]
     Active Substance: METHYLCOBALAMIN
     Indication: Vitamin B12 deficiency
     Route: 048

REACTIONS (3)
  - Amyloid related imaging abnormality-oedema/effusion [Recovered/Resolved]
  - Amyloid related imaging abnormality-microhaemorrhages and haemosiderin deposits [Recovered/Resolved]
  - Vomiting [Recovered/Resolved]

NARRATIVE: CASE EVENT DATE: 20251112
